FAERS Safety Report 6677194-0 (Version None)
Quarter: 2010Q2

REPORT INFORMATION
  Report Type: 
  Country: None (occurrence: None)
  Receive Date: 20100412
  Receipt Date: 20100408
  Transmission Date: 20101027
  Serious: Yes (Death)
  Sender: FDA-Public Use
  Company Number: JP-B.I. PHARMACEUTICALS,INC./RIDGEFIELD-2010-BP-04031NB

PATIENT
  Age: 63 Year
  Sex: Male

DRUGS (7)
  1. BI-SIFROL TABLETS [Suspect]
     Dosage: 3 MG
     Route: 048
  2. MENESIT [Suspect]
     Dosage: 400 MG
     Route: 048
  3. DOPS [Suspect]
     Dosage: 6 ANZ
     Route: 048
  4. NORVASC [Concomitant]
     Dosage: 5 MG
     Route: 048
  5. CANDESARTAN CILEXETIL [Concomitant]
     Dosage: 5 MG
     Route: 048
  6. METHYCOBAL [Concomitant]
     Dosage: 1500 MCG
     Route: 048
  7. PRIVINA [Concomitant]

REACTIONS (2)
  - DEATH [None]
  - NASAL CONGESTION [None]
